FAERS Safety Report 19688730 (Version 1)
Quarter: 2021Q3

REPORT INFORMATION
  Report Type: Report from Study
  Country: US (occurrence: US)
  Receive Date: 20210812
  Receipt Date: 20210812
  Transmission Date: 20211014
  Serious: Yes (Other)
  Sender: FDA-Public Use
  Company Number: US-GILEAD-2021-0542374

PATIENT
  Age: 37 Year
  Sex: Male

DRUGS (11)
  1. PULMOZYME [Concomitant]
     Active Substance: DORNASE ALFA
     Dosage: INHALE 1 AMPULE (2.5 MG) VIA NEBULIZER ONCE A DAY
  2. MULTIVITAMIN CAPSULES (16) [Concomitant]
  3. CREON [Concomitant]
     Active Substance: PANCRELIPASE AMYLASE\PANCRELIPASE LIPASE\PANCRELIPASE PROTEASE
  4. VITAMIN D [VITAMIN D NOS] [Concomitant]
     Active Substance: VITAMIN D NOS
  5. AZITHROMYCIN [AZITHROMYCIN DIHYDRATE] [Concomitant]
  6. CALCIUM + D DUETTO [Concomitant]
     Active Substance: CALCIUM\CHOLECALCIFEROL
  7. TOBI PODHALER [Concomitant]
     Active Substance: TOBRAMYCIN
  8. ZINC. [Concomitant]
     Active Substance: ZINC
  9. AZTREONAM LYSINE [Suspect]
     Active Substance: AZTREONAM LYSINE
     Indication: CYSTIC FIBROSIS LUNG
     Dosage: 75 MG, TID, IN RECURRING CYCLES OF 28 DAYS ON AND 28 DAYS OFF
     Route: 055
  10. ALBUTEROL SULFATE HFA [Concomitant]
     Active Substance: ALBUTEROL SULFATE
  11. TRIKAFTA [Concomitant]
     Active Substance: ELEXACAFTOR\IVACAFTOR\TEZACAFTOR

REACTIONS (2)
  - Diabetes mellitus inadequate control [Unknown]
  - Dehydration [Unknown]

NARRATIVE: CASE EVENT DATE: 20210801
